FAERS Safety Report 9940912 (Version 2)
Quarter: 2014Q1

REPORT INFORMATION
  Report Type: Spontaneous
  Country: GB (occurrence: GB)
  Receive Date: 20140303
  Receipt Date: 20140303
  Transmission Date: 20141002
  Serious: Yes (Other)
  Sender: FDA-Public Use
  Company Number: GB-TEVA-270274ISR

PATIENT
  Age: 83 Year
  Sex: Female

DRUGS (4)
  1. CLARITHROMYCIN [Suspect]
     Indication: PNEUMONIA
     Route: 048
  2. SIMVASTATIN [Interacting]
     Indication: HYPERLIPIDAEMIA
  3. AMOXICILLIN [Concomitant]
  4. CLAVULANATE POTASSIUM [Concomitant]

REACTIONS (5)
  - Rhabdomyolysis [Unknown]
  - Myopathy [Unknown]
  - Hypercalcaemia [Unknown]
  - Dehydration [Unknown]
  - Drug interaction [Unknown]
